FAERS Safety Report 8237066-7 (Version None)
Quarter: 2012Q1

REPORT INFORMATION
  Report Type: 
  Country: None (occurrence: None)
  Receive Date: 20120327
  Receipt Date: 20120322
  Transmission Date: 20120608
  Serious: Yes (Other)
  Sender: FDA-Public Use
  Company Number: CN-PFIZER INC-2012068914

PATIENT
  Age: 5 Year
  Sex: Male

DRUGS (2)
  1. METHOTREXATE [Concomitant]
     Indication: LEUKAEMIA
     Dosage: 12.5 MG, ONE TRIAL
     Route: 037
  2. CYTOSAR-U [Suspect]
     Indication: LEUKAEMIA
     Dosage: 25 MG, ONE TRIAL
     Route: 037

REACTIONS (1)
  - SHOCK [None]
